FAERS Safety Report 6771394-7 (Version None)
Quarter: 2010Q2

REPORT INFORMATION
  Report Type: 
  Country: None (occurrence: None)
  Receive Date: 20100616
  Receipt Date: 20100607
  Transmission Date: 20101027
  Serious: Yes (Hospitalization, Other)
  Sender: FDA-Public Use
  Company Number: US-ASTRAZENECA-2010SE23477

PATIENT
  Age: 371 Month
  Sex: Male
  Weight: 88.9 kg

DRUGS (2)
  1. NEXIUM [Suspect]
     Indication: GASTROOESOPHAGEAL REFLUX DISEASE
     Route: 048
     Dates: start: 20060801
  2. NEXIUM [Suspect]
     Route: 048

REACTIONS (1)
  - BENIGN NEOPLASM OF THYROID GLAND [None]
